FAERS Safety Report 13142611 (Version 1)
Quarter: 2017Q1

REPORT INFORMATION
  Report Type: Spontaneous
  Country: US (occurrence: US)
  Receive Date: 20170123
  Receipt Date: 20170123
  Transmission Date: 20170428
  Serious: No
  Sender: FDA-Public Use
  Company Number: US-BAUSCH-BL-2015-030561

PATIENT
  Sex: Female

DRUGS (1)
  1. TOBRAMYCIN OPHTHALMIC SOLUTION USP 0.3% [Suspect]
     Active Substance: TOBRAMYCIN
     Indication: POSTOPERATIVE CARE
     Route: 047
     Dates: start: 201512, end: 201512

REACTIONS (3)
  - Off label use [Recovered/Resolved]
  - Increased upper airway secretion [Recovered/Resolved]
  - Sinus congestion [Recovered/Resolved]

NARRATIVE: CASE EVENT DATE: 201512
